FAERS Safety Report 13108007 (Version 1)
Quarter: 2017Q1

REPORT INFORMATION
  Report Type: Spontaneous
  Country: IT (occurrence: IT)
  Receive Date: 20170112
  Receipt Date: 20170112
  Transmission Date: 20170428
  Serious: Yes (Other)
  Sender: FDA-Public Use
  Company Number: IT-ROCHE-1877360

PATIENT
  Age: 44 Year
  Sex: Female
  Weight: 65 kg

DRUGS (3)
  1. RISPERDAL [Suspect]
     Active Substance: RISPERIDONE
     Indication: PRODUCT USED FOR UNKNOWN INDICATION
     Dosage: 1 MG FILM-COATED TABLETS^ 20 TABLETS
     Route: 048
     Dates: start: 20161119, end: 20161119
  2. RIVOTRIL [Suspect]
     Active Substance: CLONAZEPAM
     Indication: PRODUCT USED FOR UNKNOWN INDICATION
     Dosage: 2 MG TABLETS 20 TABLETS
     Route: 048
     Dates: start: 20161119, end: 20161119
  3. ENTUMIN [Suspect]
     Active Substance: CLOTHIAPINE
     Indication: PRODUCT USED FOR UNKNOWN INDICATION
     Dosage: 100 MG/ML ORAL DROPS  SOLUTION 10 ML BOTTLE
     Route: 048
     Dates: start: 20161119, end: 20161119

REACTIONS (3)
  - Overdose [Unknown]
  - Sopor [Unknown]
  - Intentional self-injury [Unknown]

NARRATIVE: CASE EVENT DATE: 20161119
